FAERS Safety Report 22285287 (Version 2)
Quarter: 2023Q2

REPORT INFORMATION
  Report Type: Spontaneous
  Country: US (occurrence: US)
  Receive Date: 20230504
  Receipt Date: 20230509
  Transmission Date: 20230722
  Serious: Yes (Other)
  Sender: FDA-Public Use
  Company Number: US-PFIZER INC-202300178130

PATIENT
  Age: 74 Year
  Sex: Female
  Weight: 100.24 kg

DRUGS (2)
  1. PAXLOVID [Suspect]
     Active Substance: NIRMATRELVIR\RITONAVIR
     Indication: COVID-19 treatment
     Dosage: 1 DF, 2X/DAY (MORNING AND ONE AT NIGHT. )
     Dates: start: 20230403, end: 20230410
  2. NUCALA [Concomitant]
     Active Substance: MEPOLIZUMAB
     Indication: Asthma
     Dosage: UNK, CYCLIC (EVERY 28 DAYS)

REACTIONS (17)
  - Eye infection [Unknown]
  - Dehydration [Unknown]
  - Incorrect dose administered [Unknown]
  - Malaise [Unknown]
  - Feeling abnormal [Unknown]
  - Fall [Unknown]
  - Visual brightness [Unknown]
  - Hyperacusis [Unknown]
  - Abdominal pain upper [Unknown]
  - Constipation [Unknown]
  - Thinking abnormal [Unknown]
  - Speech disorder [Unknown]
  - Brain fog [Unknown]
  - Chest discomfort [Unknown]
  - Abdominal distension [Unknown]
  - Fatigue [Unknown]
  - Emotional disorder [Unknown]
